FAERS Safety Report 16126522 (Version 4)
Quarter: 2019Q2

REPORT INFORMATION
  Report Type: Spontaneous
  Country: FR (occurrence: FR)
  Receive Date: 20190328
  Receipt Date: 20190422
  Transmission Date: 20190711
  Serious: Yes (Hospitalization, Other)
  Sender: FDA-Public Use
  Company Number: FR-SA-2019SA078050

PATIENT
  Age: 70 Year
  Sex: Male
  Weight: 95 kg

DRUGS (19)
  1. ZELITREX [Concomitant]
     Active Substance: VALACYCLOVIR HYDROCHLORIDE
     Indication: INFECTION
     Dosage: 1 DF, BID
     Route: 065
  2. ACIDE FOLIQUE [Concomitant]
     Active Substance: FOLIC ACID
     Dosage: 1 DF, QW
     Route: 065
  3. ABASAGLAR [Concomitant]
     Active Substance: INSULIN GLARGINE
     Dosage: 20 U, QD (EVENING)
     Route: 065
  4. EUPRESSYL [URAPIDIL] [Concomitant]
     Active Substance: URAPIDIL
     Dosage: 1 DF, QD (MORNING AND EVENING)
     Route: 065
  5. ADENURIC [Concomitant]
     Active Substance: FEBUXOSTAT
     Dosage: 1 DF, QD (MORNING)
  6. ELUDRILPERIO [Concomitant]
     Active Substance: CHLORHEXIDINE GLUCONATE
     Dosage: UNK UNK, TID
     Route: 065
  7. NOVORAPID [Concomitant]
     Active Substance: INSULIN ASPART
     Dosage: 5 U, TID
     Route: 065
  8. TAREG [Concomitant]
     Active Substance: VALSARTAN
     Dosage: 1 DF, QD
     Route: 065
  9. CABLIVI [Suspect]
     Active Substance: CAPLACIZUMAB-YHDP
     Indication: THROMBOTIC THROMBOCYTOPENIC PURPURA
     Dosage: 10 MG, QD
     Route: 058
     Dates: start: 20190215, end: 20190329
  10. PENTACARINAT [Concomitant]
     Active Substance: PENTAMIDINE ISETHIONATE
     Indication: INFECTION
     Dosage: UNK UNK, QM
     Route: 065
  11. RITUXIMAB. [Concomitant]
     Active Substance: RITUXIMAB
     Indication: THROMBOTIC THROMBOCYTOPENIC PURPURA
     Dosage: 4 DF
     Route: 065
     Dates: start: 20190215
  12. SEEBRI [Concomitant]
     Active Substance: GLYCOPYRROLATE
     Dosage: 1 DF, QD
     Route: 065
  13. SPIRIVA [Concomitant]
     Active Substance: TIOTROPIUM BROMIDE MONOHYDRATE
     Dosage: 1 DF, QD
     Route: 065
  14. TAHOR [Concomitant]
     Active Substance: ATORVASTATIN CALCIUM
     Dosage: 1 DF, QD
     Route: 048
  15. KARDEGIC [Suspect]
     Active Substance: ASPIRIN DL-LYSINE
     Indication: ARTERIAL DISORDER
     Dosage: 75 MG, QD
     Route: 048
     Dates: start: 20190220
  16. GALVUS [Concomitant]
     Active Substance: VILDAGLIPTIN
     Indication: DIABETES MELLITUS
     Dosage: 1 DF, QD (MORNING)
     Route: 065
  17. DIFFU K [Concomitant]
     Active Substance: POTASSIUM CHLORIDE
     Dosage: 1 DF, TID (MORNING, NOON, EVENING)
     Route: 065
  18. CLOPIDOGREL BISULFATE. [Suspect]
     Active Substance: CLOPIDOGREL BISULFATE
     Dosage: UNK
     Route: 065
     Dates: start: 2018, end: 201902
  19. VALSARTAN. [Concomitant]
     Active Substance: VALSARTAN
     Dosage: 1 DF, QD
     Route: 065

REACTIONS (5)
  - Gastrointestinal haemorrhage [Recovered/Resolved]
  - Shock haemorrhagic [Recovered/Resolved]
  - Thrombocytopenia [Unknown]
  - Renal impairment [Unknown]
  - Small intestinal haemorrhage [Recovered/Resolved]

NARRATIVE: CASE EVENT DATE: 20190312
